FAERS Safety Report 16625535 (Version 1)
Quarter: 2019Q3

REPORT INFORMATION
  Report Type: Spontaneous
  Country: US (occurrence: US)
  Receive Date: 20190612
  Receipt Date: 20190612
  Transmission Date: 20191004
  Serious: No
  Sender: FDA-Public Use
  Company Number: None

PATIENT
  Age: 76 Year
  Sex: Male

DRUGS (1)
  1. BISACODYL ENTERIC COATED [Suspect]
     Active Substance: BISACODYL

REACTIONS (4)
  - Posture abnormal [None]
  - Dizziness [None]
  - Feeling cold [None]
  - Vomiting [None]
